FAERS Safety Report 7618550-3 (Version None)
Quarter: 2011Q3

REPORT INFORMATION
  Report Type: 
  Country: None (occurrence: None)
  Receive Date: 20110718
  Receipt Date: 20110706
  Transmission Date: 20111222
  Serious: Yes (Other)
  Sender: FDA-Public Use
  Company Number: CHPA2011US08929

PATIENT
  Age: 75 Year
  Sex: Male

DRUGS (3)
  1. ASPIRIN [Concomitant]
     Dosage: UNK, DAILY
     Route: 048
  2. PREVACID 24 HR [Suspect]
     Indication: CROHN'S DISEASE
     Dosage: 15 MG, QD
     Route: 048
  3. PREVACID 24 HR [Suspect]
     Indication: DYSPEPSIA

REACTIONS (7)
  - DIARRHOEA [None]
  - THERAPEUTIC RESPONSE UNEXPECTED [None]
  - CROHN'S DISEASE [None]
  - MYOCARDIAL INFARCTION [None]
  - WEIGHT DECREASED [None]
  - OFF LABEL USE [None]
  - INCORRECT DRUG ADMINISTRATION DURATION [None]
